FAERS Safety Report 8985945 (Version 4)
Quarter: 2013Q1

REPORT INFORMATION
  Report Type: Spontaneous
  Country: JP (occurrence: JP)
  Receive Date: 20121226
  Receipt Date: 20130225
  Transmission Date: 20140127
  Serious: Yes (Death)
  Sender: FDA-Public Use
  Company Number: JP-PFIZER INC-2012323113

PATIENT
  Age: 73 Year
  Sex: Male
  Weight: 53 kg

DRUGS (26)
  1. CAMPTO [Suspect]
     Indication: RECTAL CANCER
     Dosage: 250 MG/BODY (153.6 MG/M2), 1X/DAY
     Route: 041
     Dates: start: 20120719, end: 20120719
  2. CAMPTO [Suspect]
     Dosage: 150 MG/BODY (92.1 MG/M2), 1X/DAY
     Route: 041
     Dates: start: 20120823, end: 20120823
  3. CAMPTO [Suspect]
     Dosage: 150 MG, 1X/DAY
     Route: 041
     Dates: start: 20120913, end: 20120913
  4. CAMPTO [Suspect]
     Dosage: 150 MG, 1X/DAY
     Route: 041
     Dates: start: 20120927, end: 20120927
  5. CAMPTO [Suspect]
     Dosage: 160 MG/BODY (98.3 MG/M2), 1X/DAY
     Route: 041
     Dates: start: 20121129, end: 20121129
  6. 5-FU [Suspect]
     Indication: RECTAL CANCER
     Dosage: 680 MG/BODY (417.7 MG/M2), 1X/DAY
     Route: 040
     Dates: start: 20120719, end: 20120719
  7. 5-FU [Suspect]
     Dosage: 4000 MG/DODY (2457 MG/M2/D1-2), ONCE IN 2 DAYS
     Route: 041
     Dates: start: 20120719, end: 20120719
  8. 5-FU [Suspect]
     Dosage: 400 MG/BODY (245.7 MG/M2), 1X/DAY
     Route: 040
     Dates: start: 20120823, end: 20120823
  9. 5-FU [Suspect]
     Dosage: 2400 MG/BODY/D1-2 (1474.2 MG/M2/D1-2), ONCE IN 2 DAYS
     Route: 041
     Dates: start: 20120823, end: 20120823
  10. 5-FU [Suspect]
     Dosage: 2400 MG, ONCE IN 2 DAYS
     Route: 041
     Dates: start: 20120913, end: 20120913
  11. 5-FU [Suspect]
     Dosage: 2400 MG, ALTERNATE DAY
     Route: 041
     Dates: start: 20120927, end: 20120927
  12. ERBITUX [Suspect]
     Indication: RECTAL CANCER
     Dosage: 400 MG/BODY, 1X/DAY
     Route: 041
     Dates: start: 20121108, end: 20121108
  13. ERBITUX [Suspect]
     Dosage: 250 MG/BODY, 1X/DAY
     Route: 041
     Dates: start: 20121115, end: 20121115
  14. ERBITUX [Suspect]
     Dosage: 250 MG, 1X/DAY
     Route: 041
     Dates: start: 20121122, end: 20121122
  15. ERBITUX [Suspect]
     Dosage: 330 MG, 1X/DAY
     Dates: start: 20121129, end: 20121129
  16. LEVOFOLINATE CALCIUM [Concomitant]
     Indication: RECTAL CANCER
     Dosage: 340 MG/BODY (208.8 MG/M2), CYCLIC
     Dates: start: 20120719
  17. LEVOFOLINATE CALCIUM [Concomitant]
     Dosage: 200 MG/BODY (122.9 MG/M2), CYCLIC
     Dates: start: 20120823, end: 20120927
  18. AVASTIN [Concomitant]
     Indication: RECTAL CANCER
     Dosage: 300 MG/BODY, CYCLIC
     Dates: start: 20120719, end: 20120927
  19. ZOFRAN [Concomitant]
     Dosage: UNK
     Dates: start: 20120719, end: 20121129
  20. DECADRON [Concomitant]
     Dosage: UNK
     Dates: start: 20120719, end: 20121129
  21. DECADRON [Concomitant]
     Dosage: UNK
     Dates: start: 20120728, end: 20121211
  22. NEUTROGIN [Concomitant]
     Dosage: UNK
     Dates: start: 20120802, end: 20121211
  23. BENAMBAX [Concomitant]
     Dosage: UNK
     Dates: start: 20121208, end: 20121211
  24. PLATELETS CONCENTRATE [Concomitant]
     Dosage: UNK
     Dates: start: 20121208, end: 20121209
  25. INDAST [Concomitant]
     Dosage: UNK
     Dates: start: 20121207, end: 20121211
  26. DOGMATYL [Concomitant]
     Dosage: UNK
     Route: 048
     Dates: start: 20120728, end: 20121211

REACTIONS (8)
  - Thrombocytopenia [Fatal]
  - Disseminated intravascular coagulation [Fatal]
  - Diarrhoea [Fatal]
  - Leukopenia [Fatal]
  - Respiratory tract infection [Fatal]
  - Decreased appetite [Not Recovered/Not Resolved]
  - Malaise [Not Recovered/Not Resolved]
  - Vomiting [Not Recovered/Not Resolved]
